FAERS Safety Report 19460092 (Version 3)
Quarter: 2021Q3

REPORT INFORMATION
  Report Type: Spontaneous
  Country: BR (occurrence: BR)
  Receive Date: 20210625
  Receipt Date: 20210716
  Transmission Date: 20211014
  Serious: Yes (Other)
  Sender: FDA-Public Use
  Company Number: BR-ALXN-A202107177

PATIENT
  Sex: Female
  Weight: 2.18 kg

DRUGS (2)
  1. SOLIRIS [Suspect]
     Active Substance: ECULIZUMAB
     Indication: PRODUCT USED FOR UNKNOWN INDICATION
     Dosage: 1200 MG, Q2W
     Route: 015
     Dates: start: 202010, end: 20210605
  2. SOLIRIS [Suspect]
     Active Substance: ECULIZUMAB
     Dosage: 1200 MG, Q2W
     Route: 063
     Dates: start: 20210605

REACTIONS (4)
  - Low birth weight baby [Recovered/Resolved]
  - Exposure via breast milk [Not Recovered/Not Resolved]
  - Premature baby [Recovered/Resolved]
  - Poor feeding infant [Recovered/Resolved]

NARRATIVE: CASE EVENT DATE: 20210605
